FAERS Safety Report 14577196 (Version 2)
Quarter: 2018Q2

REPORT INFORMATION
  Report Type: Spontaneous
  Country: AT (occurrence: AT)
  Receive Date: 20180227
  Receipt Date: 20180402
  Transmission Date: 20180711
  Serious: Yes (Hospitalization)
  Sender: FDA-Public Use
  Company Number: AT-ABBVIE-18P-009-2266707-00

PATIENT
  Age: 59 Year
  Sex: Male
  Weight: 70 kg

DRUGS (1)
  1. MAVIRET [Suspect]
     Active Substance: GLECAPREVIR\PIBRENTASVIR
     Indication: HEPATITIS C
     Dosage: 100/40 MG
     Route: 065
     Dates: start: 20171027, end: 20171221

REACTIONS (3)
  - Vertigo [Recovering/Resolving]
  - Dizziness [Recovering/Resolving]
  - Osmotic demyelination syndrome [Unknown]

NARRATIVE: CASE EVENT DATE: 201712
